FAERS Safety Report 9588144 (Version 1)
Quarter: 2013Q4

REPORT INFORMATION
  Report Type: Spontaneous
  Country: US (occurrence: US)
  Receive Date: 20131003
  Receipt Date: 20131003
  Transmission Date: 20140711
  Serious: No
  Sender: FDA-Public Use
  Company Number: US-AMGEN-USASP2012067872

PATIENT
  Sex: Male
  Weight: 120.18 kg

DRUGS (10)
  1. ENBREL [Suspect]
     Indication: PRODUCT USED FOR UNKNOWN INDICATION
     Dosage: 50 MG, 2 TIMES/WK
     Route: 058
  2. LISINOPRIL [Concomitant]
     Dosage: 30 MG, UNK
  3. VITAMIN D NOS [Concomitant]
     Dosage: 400 UNK, UNK
  4. STELARA [Concomitant]
     Dosage: 90 MG/ML, UNK
  5. VITAMIN A                          /00056001/ [Concomitant]
     Dosage: 15000 UNIT, UNK
  6. VITAMIN B [Concomitant]
     Dosage: UNK
  7. VITAMIN C                          /00008001/ [Concomitant]
     Dosage: 500 MG, UNK,CR.
  8. VITAMIN E                          /00110501/ [Concomitant]
     Dosage: 3000 UNIT, UNK
  9. HUMIRA [Concomitant]
     Dosage: UNK
  10. ACETYLSALICYLIC ACID  LOW STR [Concomitant]
     Dosage: 81 MG EC, UNK

REACTIONS (1)
  - Drug ineffective [Unknown]
